FAERS Safety Report 7948330-0 (Version None)
Quarter: 2011Q4

REPORT INFORMATION
  Report Type: 
  Country: None (occurrence: None)
  Receive Date: 20111123
  Receipt Date: 20111107
  Transmission Date: 20120403
  Serious: Yes (Hospitalization, Other)
  Sender: FDA-Public Use
  Company Number: 1000025309

PATIENT
  Age: 19 Year
  Sex: Female

DRUGS (1)
  1. PROPRANOLOL HYDROCHLORIDE [Suspect]

REACTIONS (4)
  - OVERDOSE [None]
  - HYPOGLYCAEMIA [None]
  - HYPOKALAEMIA [None]
  - CARDIOGENIC SHOCK [None]
